FAERS Safety Report 5010173-8 (Version None)
Quarter: 2006Q2

REPORT INFORMATION
  Report Type: 
  Country: None (occurrence: None)
  Receive Date: 20060404
  Receipt Date: 20051214
  Transmission Date: 20061013
  Serious: No
  Sender: FDA-Public Use
  Company Number: US200512002451

PATIENT
  Age: 58 Year
  Sex: Male

DRUGS (11)
  1. CYMBALTA [Suspect]
     Indication: DEPRESSION
     Dosage: 60 MG, DAILY (1/D), ORAL; SEE IMAGE
     Route: 048
     Dates: start: 20050101
  2. AMARYL /SWE/ (GLIMEPIRIDE) [Concomitant]
  3. TOPROL-XL [Concomitant]
  4. DIOVAN [Concomitant]
  5. SYNTHROID [Concomitant]
  6. ECEDRIN (ETACRYNIC ACID) [Concomitant]
  7. SEROQUEL [Concomitant]
  8. NOVOLOG MIX 70/30 (INSULIN ASPART, PROTAMINE INSULIN ASPART) [Concomitant]
  9. KLOR-CON [Concomitant]
  10. PLAVIX [Concomitant]
  11. TRICOR [Concomitant]

REACTIONS (4)
  - DEPRESSION [None]
  - DIFFICULTY IN WALKING [None]
  - MUSCLE SPASMS [None]
  - MYALGIA [None]
